FAERS Safety Report 17221254 (Version 1)
Quarter: 2019Q4

REPORT INFORMATION
  Report Type: Spontaneous
  Country: KZ (occurrence: KZ)
  Receive Date: 20191231
  Receipt Date: 20191231
  Transmission Date: 20200122
  Serious: Yes (Other)
  Sender: FDA-Public Use
  Company Number: KZ-BAUSCH-BL-2019-066857

PATIENT
  Sex: Female

DRUGS (2)
  1. ALFA NORMIX [Suspect]
     Active Substance: RIFAXIMIN
     Indication: IRRITABLE BOWEL SYNDROME
     Route: 048
     Dates: start: 20191212, end: 20191217
  2. ALFA NORMIX [Suspect]
     Active Substance: RIFAXIMIN
     Indication: INTENTIONAL PRODUCT USE ISSUE

REACTIONS (7)
  - Dizziness [Unknown]
  - Abdominal pain upper [Unknown]
  - Intentional product use issue [Recovered/Resolved]
  - Abdominal discomfort [Unknown]
  - Tachycardia [Unknown]
  - Dyspnoea [Unknown]
  - Angina pectoris [Unknown]

NARRATIVE: CASE EVENT DATE: 201912
